FAERS Safety Report 5858118 (Version 4)
Quarter: 2012Q4

REPORT INFORMATION
  Report Type: 
  Country: CH (occurrence: US)
  Receive Date: 20050811
  Receipt Date: 20121127
  Transmission Date: 20130627
  Serious: Yes (Other)
  Sender: FDA-Public Use
  Company Number: US-BRISTOL-MYERS SQUIBB COMPANY-13067566

PATIENT
  Age: 27 Year
  Sex: Female

DRUGS (4)
  1. EFAVIRENZ CAPS [Suspect]
     Indication: ACQUIRED IMMUNODEFICIENCY SYNDROME
     Route: 048
  2. LAMIVUDINE [Suspect]
     Indication: ACQUIRED IMMUNODEFICIENCY SYNDROME
  3. TENOFOVIR [Suspect]
     Indication: ACQUIRED IMMUNODEFICIENCY SYNDROME
  4. NEVIRAPINE [Suspect]
     Indication: ACQUIRED IMMUNODEFICIENCY SYNDROME
     Dosage: STARTED WEEK 16 OF GESTATION CONTINUED TO DELIVERY

REACTIONS (3)
  - Gestational diabetes [Unknown]
  - Pregnancy [Recovered/Resolved]
  - Live birth [Unknown]
